FAERS Safety Report 12248219 (Version 2)
Quarter: 2017Q1

REPORT INFORMATION
  Report Type: Spontaneous
  Country: US (occurrence: US)
  Receive Date: 20160408
  Receipt Date: 20170208
  Transmission Date: 20170428
  Serious: Yes (Other)
  Sender: FDA-Public Use
  Company Number: US-ASTRAZENECA-2016SE29857

PATIENT
  Sex: Female

DRUGS (2)
  1. TAGRISSO [Suspect]
     Active Substance: OSIMERTINIB
     Indication: LUNG NEOPLASM MALIGNANT
     Route: 048
     Dates: start: 20160301
  2. TAGRISSO [Suspect]
     Active Substance: OSIMERTINIB
     Indication: NEOPLASM MALIGNANT
     Route: 048
     Dates: start: 20160301

REACTIONS (6)
  - Malignant neoplasm progression [Not Recovered/Not Resolved]
  - Hunger [Unknown]
  - Dyspnoea [Unknown]
  - Abdominal pain upper [Unknown]
  - Fatigue [Unknown]
  - Cough [Unknown]
